FAERS Safety Report 16352892 (Version 1)
Quarter: 2019Q2

REPORT INFORMATION
  Report Type: Spontaneous
  Country: US (occurrence: US)
  Receive Date: 20190524
  Receipt Date: 20190524
  Transmission Date: 20190711
  Serious: No
  Sender: FDA-Public Use
  Company Number: US-PFIZER INC-2019117422

PATIENT
  Age: 54 Year
  Sex: Male
  Weight: 87.9 kg

DRUGS (4)
  1. RAPAMUNE [Suspect]
     Active Substance: SIROLIMUS
     Indication: LIVER TRANSPLANT
     Dosage: 5 MG, DAILY
     Route: 048
     Dates: start: 201901, end: 20190424
  2. RAPAMUNE [Suspect]
     Active Substance: SIROLIMUS
     Indication: LIVER TRANSPLANT REJECTION
  3. NOVOLOG [Concomitant]
     Active Substance: INSULIN ASPART
     Indication: DIABETES MELLITUS
     Dosage: UNK
  4. DACLIZUMAB [Concomitant]
     Active Substance: DACLIZUMAB
     Dosage: UNK

REACTIONS (8)
  - Dyspnoea [Not Recovered/Not Resolved]
  - Urticaria [Not Recovered/Not Resolved]
  - Product use in unapproved indication [Unknown]
  - Arthralgia [Not Recovered/Not Resolved]
  - Rash generalised [Not Recovered/Not Resolved]
  - Confusional state [Unknown]
  - Chest pain [Not Recovered/Not Resolved]
  - Off label use [Unknown]

NARRATIVE: CASE EVENT DATE: 2019
